FAERS Safety Report 7289543-3 (Version None)
Quarter: 2011Q1

REPORT INFORMATION
  Report Type: 
  Country: None (occurrence: None)
  Receive Date: 20110213
  Receipt Date: 20110207
  Transmission Date: 20110831
  Serious: Yes (Other)
  Sender: FDA-Public Use
  Company Number: FR-BRISTOL-MYERS SQUIBB COMPANY-15533540

PATIENT
  Age: 53 Year
  Sex: Male

DRUGS (2)
  1. ABILIFY [Suspect]
     Dosage: STOPPED 15 DAYS AGO
     Dates: end: 20110101
  2. MARSILID [Suspect]
     Dosage: SINCE AROUND 2.5 MONTHS, STOPPED 15 DAYS AGO
     Dates: end: 20110101

REACTIONS (1)
  - HEPATITIS CHOLESTATIC [None]
